FAERS Safety Report 13120581 (Version 8)
Quarter: 2018Q2

REPORT INFORMATION
  Report Type: Spontaneous
  Country: US (occurrence: US)
  Receive Date: 20170117
  Receipt Date: 20180424
  Transmission Date: 20180711
  Serious: No
  Sender: FDA-Public Use
  Company Number: US-PFIZER INC-2017016306

PATIENT
  Age: 70 Year
  Sex: Female
  Weight: 83 kg

DRUGS (5)
  1. IBRANCE [Suspect]
     Active Substance: PALBOCICLIB
     Indication: BREAST CANCER METASTATIC
     Dosage: 125 MG, CYCLIC, (DAILY FOR 21 DAYS THAN 7 DAYS OFF)
     Route: 048
     Dates: start: 20161230
  2. IBRANCE [Suspect]
     Active Substance: PALBOCICLIB
     Dosage: 100 MG, CYCLIC (D 1-21 Q 28 DAYS)
     Route: 048
     Dates: start: 20161230
  3. LETROZOLE. [Suspect]
     Active Substance: LETROZOLE
     Dosage: UNK
     Dates: end: 20170510
  4. FASLODEX [Suspect]
     Active Substance: FULVESTRANT
     Dosage: UNK
     Dates: start: 20170517
  5. IBRANCE [Suspect]
     Active Substance: PALBOCICLIB
     Dosage: 100 MG, CYCLIC (DAY 1-21 Q28 DAYS)
     Route: 048
     Dates: start: 20161230

REACTIONS (21)
  - Pain in extremity [Unknown]
  - Anxiety [Unknown]
  - Gingival bleeding [Recovered/Resolved]
  - Fatigue [Unknown]
  - Hot flush [Recovering/Resolving]
  - Musculoskeletal pain [Unknown]
  - Cough [Unknown]
  - Sleep disorder [Unknown]
  - Back pain [Unknown]
  - Skin fissures [Unknown]
  - Rash papular [Unknown]
  - Stomatitis [Recovered/Resolved]
  - Glossodynia [Recovered/Resolved]
  - Pain [Unknown]
  - Arthralgia [Unknown]
  - Arthritis [Unknown]
  - Stress [Unknown]
  - Dyspepsia [Not Recovered/Not Resolved]
  - Neoplasm progression [Unknown]
  - Spondylitis [Unknown]
  - Condition aggravated [Unknown]
